FAERS Safety Report 5853415-9 (Version None)
Quarter: 2008Q3

REPORT INFORMATION
  Report Type: 
  Country: None (occurrence: None)
  Receive Date: 20080821
  Receipt Date: 20080811
  Transmission Date: 20090109
  Serious: Yes (Other)
  Sender: FDA-Public Use
  Company Number: BR-PFIZER INC-2008067979

PATIENT
  Sex: Female

DRUGS (3)
  1. CHANTIX [Suspect]
     Indication: SMOKING CESSATION THERAPY
     Route: 048
     Dates: start: 20080701, end: 20080804
  2. PURAN T4 [Concomitant]
     Indication: HYPERTHYROIDISM
  3. TIBOLONE [Concomitant]
     Indication: MENOPAUSE

REACTIONS (7)
  - BRADYPHRENIA [None]
  - DEPRESSION [None]
  - ILLUSION [None]
  - NAUSEA [None]
  - SALIVARY HYPERSECRETION [None]
  - SCHIZOPHRENIFORM DISORDER [None]
  - SOMNOLENCE [None]
